FAERS Safety Report 8157713-8 (Version None)
Quarter: 2012Q1

REPORT INFORMATION
  Report Type: 
  Country: None (occurrence: None)
  Receive Date: 20120222
  Receipt Date: 20120220
  Transmission Date: 20120608
  Serious: Yes (Other)
  Sender: FDA-Public Use
  Company Number: US-PFIZER INC-2012027271

PATIENT
  Sex: Female
  Weight: 107 kg

DRUGS (11)
  1. HALOPERIDOL [Concomitant]
     Indication: MENTAL RETARDATION
     Dosage: 5 MG, 2X/DAY
  2. CHANTIX [Suspect]
     Dosage: 1 MG, 2X/DAY
     Route: 048
     Dates: start: 20120101, end: 20120101
  3. CHANTIX [Suspect]
     Dosage: UNK
     Route: 048
     Dates: start: 20120101
  4. CHANTIX [Suspect]
     Dosage: UNK
  5. CITALOPRAM [Concomitant]
     Indication: MENTAL RETARDATION
     Dosage: 50 MG, DAILY
  6. BENZTROPINE MESYLATE [Concomitant]
     Indication: MENTAL RETARDATION
     Dosage: 2 MG, 2X/DAY
     Dates: start: 20090101
  7. SEROQUEL XR [Concomitant]
     Indication: POST-TRAUMATIC STRESS DISORDER
     Dosage: 2 EXTENDED-RELEASE 300MG TABLETS, DAILY AT NIGHT
     Route: 048
  8. SEROQUEL XR [Concomitant]
     Indication: MENTAL RETARDATION
  9. CHANTIX [Suspect]
     Indication: SMOKING CESSATION THERAPY
     Dosage: 0.5 MG, UNK
     Route: 048
     Dates: start: 20120101, end: 20120101
  10. CHANTIX [Suspect]
     Dosage: 0.5 MG, 2X/DAY
     Route: 048
     Dates: start: 20120101, end: 20120101
  11. ALBUTEROL [Concomitant]
     Indication: ASTHMA
     Dosage: TWO PUFFS 5X/DAY
     Route: 055

REACTIONS (7)
  - STRESS [None]
  - DRUG INEFFECTIVE [None]
  - IRRITABILITY [None]
  - MENTAL DISORDER [None]
  - CONFUSIONAL STATE [None]
  - DIARRHOEA [None]
  - AGGRESSION [None]
